FAERS Safety Report 7773871-9 (Version None)
Quarter: 2011Q3

REPORT INFORMATION
  Report Type: 
  Country: None (occurrence: None)
  Receive Date: 20110923
  Receipt Date: 20110921
  Transmission Date: 20111222
  Serious: Yes (Other)
  Sender: FDA-Public Use
  Company Number: US-PFIZER INC-2011224768

PATIENT
  Sex: Male
  Weight: 74.83 kg

DRUGS (5)
  1. LIPITOR [Suspect]
     Indication: PROPHYLAXIS
     Dosage: 10 MG, 1X/DAY
     Dates: start: 19940101
  2. COENZYME Q10 [Concomitant]
     Dosage: UNK
     Dates: end: 20100101
  3. ATACAND HCT [Concomitant]
     Indication: HYPERTENSION
     Dosage: 16 MG/12.5 MG, 1X/DAY
  4. ZETIA [Concomitant]
     Dosage: 10 MG, 1X/DAY
     Dates: end: 20110701
  5. LIPITOR [Suspect]
     Dosage: 20 MG, 1X/DAY
     Dates: end: 20110818

REACTIONS (3)
  - AMNESIA [None]
  - FEELING ABNORMAL [None]
  - DISTURBANCE IN ATTENTION [None]
